FAERS Safety Report 16589280 (Version 1)
Quarter: 2019Q3

REPORT INFORMATION
  Report Type: Spontaneous
  Country: FR (occurrence: FR)
  Receive Date: 20190718
  Receipt Date: 20190718
  Transmission Date: 20191004
  Serious: Yes (Hospitalization, Other)
  Sender: FDA-Public Use
  Company Number: FR-JAZZ-2019-FR-009532

PATIENT

DRUGS (1)
  1. VYXEOS [Suspect]
     Active Substance: CYTARABINE\DAUNORUBICIN
     Indication: ACUTE MYELOID LEUKAEMIA
     Dosage: UNK
     Route: 042
     Dates: start: 20190513, end: 20190517

REACTIONS (2)
  - Bone marrow failure [Not Recovered/Not Resolved]
  - Rash [Not Recovered/Not Resolved]

NARRATIVE: CASE EVENT DATE: 20190520
